FAERS Safety Report 19619480 (Version 2)
Quarter: 2021Q3

REPORT INFORMATION
  Report Type: Report from Study
  Country: None (occurrence: US)
  Receive Date: 20210727
  Receipt Date: 20210809
  Transmission Date: 20211014
  Serious: Yes (Other)
  Sender: FDA-Public Use
  Company Number: US-ABBVIE-21K-163-4008910-00

PATIENT
  Age: 63 Year
  Sex: Female

DRUGS (3)
  1. HUMIRA [Suspect]
     Active Substance: ADALIMUMAB
     Route: 058
     Dates: start: 202107
  2. HUMIRA [Suspect]
     Active Substance: ADALIMUMAB
     Indication: ARTHRITIS
     Route: 058
     Dates: start: 2018, end: 202107
  3. HUMIRA [Suspect]
     Active Substance: ADALIMUMAB
     Indication: CROHN^S DISEASE
     Route: 058
     Dates: start: 2011

REACTIONS (18)
  - Vaginal discharge [Not Recovered/Not Resolved]
  - Chills [Recovered/Resolved]
  - Arthritis [Not Recovered/Not Resolved]
  - Pyrexia [Unknown]
  - Eczema [Not Recovered/Not Resolved]
  - Dry skin [Not Recovered/Not Resolved]
  - Pneumonia [Unknown]
  - Vaginal flatulence [Not Recovered/Not Resolved]
  - Suspected COVID-19 [Unknown]
  - Neoplasm [Unknown]
  - Urinary tract infection [Recovered/Resolved]
  - Antibody test positive [Not Recovered/Not Resolved]
  - Female genital tract fistula [Recovering/Resolving]
  - Uterine leiomyoma [Unknown]
  - Colitis [Unknown]
  - Skin fissures [Not Recovered/Not Resolved]
  - Depression [Unknown]
  - Chills [Unknown]

NARRATIVE: CASE EVENT DATE: 2011
